FAERS Safety Report 15671467 (Version 2)
Quarter: 2019Q3

REPORT INFORMATION
  Report Type: Report from Study
  Country: US (occurrence: US)
  Receive Date: 20181129
  Receipt Date: 20190712
  Transmission Date: 20191004
  Serious: Yes (Life-Threatening, Other)
  Sender: FDA-Public Use
  Company Number: US-TESARO, INC-US-2018TSO04275

PATIENT
  Age: 70 Year
  Sex: Female
  Weight: 59.86 kg

DRUGS (7)
  1. ZEJULA [Suspect]
     Active Substance: NIRAPARIB
     Indication: OVARIAN CANCER
     Dosage: 300 MG, UNK
     Route: 048
     Dates: start: 20180702, end: 20180718
  2. ZEJULA [Suspect]
     Active Substance: NIRAPARIB
     Dosage: 100 MG, QD
     Route: 048
     Dates: start: 20180808, end: 20180821
  3. ZEJULA [Suspect]
     Active Substance: NIRAPARIB
     Dosage: 200 MG, QD
     Route: 048
     Dates: start: 20181018
  4. ZEJULA [Suspect]
     Active Substance: NIRAPARIB
     Dosage: 200MG QOD ALTERNATING WITH 100MG QOD, QD WITHOUT FOOD.
     Route: 048
     Dates: start: 20190522, end: 20190709
  5. ZEJULA [Suspect]
     Active Substance: NIRAPARIB
     Dosage: 200 MG, QD PM WITHOUT FOOD
     Dates: start: 20190417
  6. ZEJULA [Suspect]
     Active Substance: NIRAPARIB
     Dosage: 200 MG, QD
     Dates: start: 20190710
  7. ZEJULA [Suspect]
     Active Substance: NIRAPARIB
     Dosage: 200 MG ALTERNATING WITH 100 MG PM WITHOUT FOOD
     Dates: start: 20180822, end: 2018

REACTIONS (16)
  - Thrombosis [Recovered/Resolved]
  - Constipation [Recovering/Resolving]
  - Inappropriate schedule of product administration [Not Recovered/Not Resolved]
  - Thrombocytopenia [Recovered/Resolved]
  - Eastern Cooperative Oncology Group performance status worsened [Unknown]
  - Anaemia [Recovered/Resolved]
  - Peripheral swelling [Recovered/Resolved]
  - White blood cell count decreased [Recovered/Resolved]
  - Osteoporosis [Unknown]
  - Weight increased [Unknown]
  - Thrombocytopenia [Recovering/Resolving]
  - Anaemia [Unknown]
  - Dehydration [Unknown]
  - Loss of consciousness [Unknown]
  - White blood cell count abnormal [Recovered/Resolved]
  - Fatigue [Recovering/Resolving]

NARRATIVE: CASE EVENT DATE: 20190522
